FAERS Safety Report 4290061-5 (Version None)
Quarter: 2004Q1

REPORT INFORMATION
  Report Type: 
  Country: None (occurrence: None)
  Receive Date: 20040209
  Receipt Date: 20040120
  Transmission Date: 20041129
  Serious: Yes (Hospitalization)
  Sender: FDA-Public Use
  Company Number: 204317

PATIENT
  Age: 46 Year
  Sex: Female
  Weight: 75.3 kg

DRUGS (10)
  1. XOLAIR [Suspect]
     Indication: ASTHMA
     Dosage: 150 MG, Q4W, SUBCUTANEOUS
     Route: 058
     Dates: start: 20031118, end: 20031216
  2. ALBUTEROL (ALBUTEROL SULFATE, ALBUTEROL) [Concomitant]
  3. FLOVENT [Concomitant]
  4. SEREVENT DISKUS (SALMETEROL XINAFOATE) [Concomitant]
  5. ADVAIR DISKUS [Concomitant]
  6. ZYBAN [Concomitant]
  7. ATROVENT [Concomitant]
  8. PREMARIN [Concomitant]
  9. PREDNISONE [Concomitant]
  10. REOPRO (ABCIXIMAB) (ABCIXIMAB) [Concomitant]

REACTIONS (2)
  - ACUTE MYOCARDIAL INFARCTION [None]
  - INFLUENZA LIKE ILLNESS [None]
